FAERS Safety Report 8135496-5 (Version None)
Quarter: 2012Q1

REPORT INFORMATION
  Report Type: 
  Country: None (occurrence: None)
  Receive Date: 20120210
  Receipt Date: 20120201
  Transmission Date: 20120608
  Serious: Yes (Life-Threatening, Hospitalization, Disabling)
  Sender: FDA-Public Use
  Company Number: TCI2012A00463

PATIENT

DRUGS (3)
  1. BLOPRESS (CANDESARTAN CLEXETIL) [Suspect]
     Dosage: 8 MG (8 MG, 1 D)
     Route: 064
  2. ACTOS [Suspect]
     Dosage: (1 IN 1 D)
     Route: 064
  3. CONIEL (BENIDIPINE HYDROCHLORIDE) [Concomitant]

REACTIONS (8)
  - CAESAREAN SECTION [None]
  - RENAL FAILURE NEONATAL [None]
  - APLASIA [None]
  - DIALYSIS [None]
  - ECHOCARDIOGRAM ABNORMAL [None]
  - MONOPLEGIA [None]
  - MATERNAL DRUGS AFFECTING FOETUS [None]
  - PULMONARY HYPOPLASIA [None]
